FAERS Safety Report 12849267 (Version 1)
Quarter: 2016Q4

REPORT INFORMATION
  Report Type: Spontaneous
  Country: US (occurrence: US)
  Receive Date: 20161014
  Receipt Date: 20161014
  Transmission Date: 20170207
  Serious: Yes (Hospitalization)
  Sender: FDA-Public Use
  Company Number: US-JNJFOC-20161009705

PATIENT
  Age: 55 Year
  Sex: Female

DRUGS (7)
  1. XANAX [Concomitant]
     Active Substance: ALPRAZOLAM
     Indication: ANXIETY
     Route: 065
     Dates: start: 201607
  2. GABAPENTIN. [Concomitant]
     Active Substance: GABAPENTIN
     Indication: NERVE INJURY
     Route: 065
     Dates: start: 201607
  3. FENTANYL. [Suspect]
     Active Substance: FENTANYL
     Indication: PAIN
     Route: 062
     Dates: start: 201607
  4. LISINOPRIL. [Concomitant]
     Active Substance: LISINOPRIL
     Indication: HYPERTENSION
     Route: 065
     Dates: start: 201607
  5. OXYCODONE HYDROCHLORIDE. [Concomitant]
     Active Substance: OXYCODONE HYDROCHLORIDE
     Indication: PAIN
     Route: 065
     Dates: start: 201607
  6. METAXALONE. [Concomitant]
     Active Substance: METAXALONE
     Indication: MYALGIA
     Route: 065
     Dates: start: 201607
  7. TOPROL XL [Concomitant]
     Active Substance: METOPROLOL SUCCINATE
     Indication: HYPERTENSION
     Route: 065
     Dates: start: 201607

REACTIONS (2)
  - Hospitalisation [Unknown]
  - Unevaluable event [Unknown]

NARRATIVE: CASE EVENT DATE: 20160828
